FAERS Safety Report 14347891 (Version 1)
Quarter: 2018Q1

REPORT INFORMATION
  Report Type: Spontaneous
  Country: US (occurrence: US)
  Receive Date: 20180102
  Receipt Date: 20180102
  Transmission Date: 20180509
  Serious: No
  Sender: FDA-Public Use
  Company Number: None

PATIENT
  Age: 71 Year
  Sex: Female

DRUGS (1)
  1. RYDAPT [Suspect]
     Active Substance: MIDOSTAURIN

REACTIONS (8)
  - Hyperhidrosis [None]
  - Chills [None]
  - Vomiting [None]
  - Muscle spasms [None]
  - Flushing [None]
  - Dizziness [None]
  - Weight increased [None]
  - Bone pain [None]

NARRATIVE: CASE EVENT DATE: 20171201
